FAERS Safety Report 24205855 (Version 1)
Quarter: 2024Q3

REPORT INFORMATION
  Report Type: Spontaneous
  Country: US (occurrence: None)
  Receive Date: 20240812
  Receipt Date: 20240812
  Transmission Date: 20241017
  Serious: No
  Sender: Public
  Company Number: None

PATIENT
  Age: 46 Year
  Sex: Female

DRUGS (23)
  1. AMBRISENTAN [Suspect]
     Active Substance: AMBRISENTAN
     Dosage: OTHER QUANTITY : 1 TABLET(S);?FREQUENCY : DAILY;?
     Route: 048
  2. DESONIDE [Concomitant]
  3. AYR SALINE NASAL [Concomitant]
  4. TADALAFIL [Concomitant]
  5. TRELEGY ELLIPTA [Concomitant]
     Active Substance: FLUTICASONE FUROATE\UMECLIDINIUM BROMIDE\VILANTEROL TRIFENATATE
  6. AMITRIPTYLINE HCL [Concomitant]
  7. POTASSIUM [Concomitant]
  8. SUBOXONE [Concomitant]
     Active Substance: BUPRENORPHINE HYDROCHLORIDE\NALOXONE HYDROCHLORIDE
  9. GABAPENTIN [Concomitant]
  10. UPTRAVI [Concomitant]
     Active Substance: SELEXIPAG
  11. VARENICLINE TARTRATE [Concomitant]
  12. MIRENA [Concomitant]
     Active Substance: LEVONORGESTREL
  13. PROVENTIL [Concomitant]
  14. MIRALAX [Concomitant]
     Active Substance: POLYETHYLENE GLYCOL 3350
  15. FAMOTIDINE [Concomitant]
  16. TUMS E-X 750 [Concomitant]
  17. MOVANTIK [Concomitant]
  18. TORSEMIDE [Concomitant]
  19. ONDANSETRON HCL [Concomitant]
  20. PROMETHAZINE HCL [Concomitant]
  21. LOVENOX [Concomitant]
  22. DRYSOL [Concomitant]
  23. ACETAMINOPHEN [Concomitant]

REACTIONS (1)
  - COVID-19 [None]

NARRATIVE: CASE EVENT DATE: 20240809
